FAERS Safety Report 6761717-7 (Version None)
Quarter: 2010Q2

REPORT INFORMATION
  Report Type: 
  Country: None (occurrence: None)
  Receive Date: 20100506
  Receipt Date: 20100422
  Transmission Date: 20101027
  Serious: Yes (Other)
  Sender: FDA-Public Use
  Company Number: HAPL-005-10-GB

PATIENT
  Age: 5 Year
  Sex: Male

DRUGS (5)
  1. (HUMAN NORMAL IMMUNOGLOBULIN FOR INTRAVENOUS ADMINISTRATION) BATCH # U [Suspect]
     Indication: DRUG USE FOR UNKNOWN INDICATION
     Dosage: 42,3 G I.V.
     Route: 042
     Dates: start: 20100321, end: 20100321
  2. ASPIRIN [Concomitant]
  3. CHLORAL HYDRATE [Concomitant]
  4. IBUPROFEN [Concomitant]
  5. ACETAMINOPHEN [Concomitant]

REACTIONS (6)
  - AGITATION [None]
  - ALOPECIA [None]
  - BODY TEMPERATURE INCREASED [None]
  - CHILLS [None]
  - LIVEDO RETICULARIS [None]
  - PRURITUS [None]
